FAERS Safety Report 7538845-1 (Version None)
Quarter: 2011Q2

REPORT INFORMATION
  Report Type: 
  Country: None (occurrence: None)
  Receive Date: 20110610
  Receipt Date: 20110519
  Transmission Date: 20111010
  Serious: Yes (Hospitalization, Other)
  Sender: FDA-Public Use
  Company Number: US-BAYER-201032485NA

PATIENT
  Age: 46 Year
  Sex: Female
  Weight: 53.515 kg

DRUGS (8)
  1. DEMEROL [Concomitant]
     Indication: VENTRICULAR TACHYCARDIA
  2. YAZ [Suspect]
     Dosage: UNK, QD
     Dates: start: 20070101, end: 20100101
  3. ALLEGRA D 24 HOUR [Concomitant]
     Dosage: 180 MG, QD
     Route: 048
  4. YAZ [Suspect]
     Indication: ORAL CONTRACEPTION
     Dosage: UNK UNK, QD
     Route: 048
     Dates: start: 20070101, end: 20100101
  5. FIORICET [Concomitant]
     Dosage: UNK UNK, PRN
     Route: 048
  6. SUDAFED 12 HOUR [Concomitant]
     Dosage: 30 MG, PRN
     Route: 048
  7. YAZ [Suspect]
     Dosage: UNK, QD
     Dates: start: 20070101, end: 20100101
  8. IBUPROFEN [Concomitant]
     Dosage: 200 MG, PRN
     Route: 048

REACTIONS (3)
  - GALLBLADDER DISORDER [None]
  - MYOCARDIAL INFARCTION [None]
  - CHOLECYSTITIS CHRONIC [None]
